FAERS Safety Report 6247087-1 (Version None)
Quarter: 2009Q2

REPORT INFORMATION
  Report Type: 
  Country: None (occurrence: None)
  Receive Date: 20090624
  Receipt Date: 20090624
  Transmission Date: 20091009
  Serious: Yes (Other)
  Sender: FDA-Public Use
  Company Number: None

PATIENT
  Sex: Female
  Weight: 79.3795 kg

DRUGS (1)
  1. AMBIEN CR [Suspect]
     Indication: INSOMNIA
     Dosage: 12.5MG NIGHTLY AS NEEDED PO
     Route: 048
     Dates: start: 20071001, end: 20080101

REACTIONS (7)
  - GLOSSODYNIA [None]
  - JAW DISORDER [None]
  - NEUROPATHY PERIPHERAL [None]
  - OROPHARYNGEAL PAIN [None]
  - SOMNOLENCE [None]
  - SWOLLEN TONGUE [None]
  - TENSION [None]
